FAERS Safety Report 7702370-5 (Version None)
Quarter: 2011Q3

REPORT INFORMATION
  Report Type: 
  Country: None (occurrence: None)
  Receive Date: 20110822
  Receipt Date: 20110808
  Transmission Date: 20111222
  Serious: Yes (Hospitalization)
  Sender: FDA-Public Use
  Company Number: GB-GILEAD-E2B_00001450

PATIENT
  Sex: Female
  Weight: 69.2 kg

DRUGS (2)
  1. PLACEBO [Suspect]
     Dates: start: 20110711
  2. AMBRISENTAN [Suspect]
     Indication: PULMONARY ARTERIAL HYPERTENSION
     Dates: start: 20110711

REACTIONS (3)
  - RENAL IMPAIRMENT [None]
  - HYPOXIA [None]
  - CELLULITIS [None]
